FAERS Safety Report 8219407-X (Version None)
Quarter: 2012Q1

REPORT INFORMATION
  Report Type: 
  Country: None (occurrence: None)
  Receive Date: 20120319
  Receipt Date: 20120308
  Transmission Date: 20120608
  Serious: Yes (Other)
  Sender: FDA-Public Use
  Company Number: JP-PFIZER INC-2012069730

PATIENT
  Age: 81 Year
  Sex: Male

DRUGS (2)
  1. LIPITOR [Suspect]
     Dosage: 5 MG, DAILY
     Route: 048
  2. NICARDIPINE HYDROCHLORIDE [Concomitant]

REACTIONS (1)
  - INTERSTITIAL LUNG DISEASE [None]
